FAERS Safety Report 5870078-7 (Version None)
Quarter: 2008Q3

REPORT INFORMATION
  Report Type: 
  Country: None (occurrence: None)
  Receive Date: 20080904
  Receipt Date: 20080825
  Transmission Date: 20090109
  Serious: Yes (Life-Threatening, Hospitalization)
  Sender: FDA-Public Use
  Company Number: DK-PFIZER INC-2008068621

PATIENT
  Sex: Male
  Weight: 95 kg

DRUGS (4)
  1. SUTENT [Suspect]
     Indication: RENAL CANCER
     Route: 048
     Dates: start: 20071017, end: 20080722
  2. OXYCONTIN [Concomitant]
     Route: 048
  3. ACETAMINOPHEN [Concomitant]
  4. OXYNORM [Concomitant]
     Route: 048

REACTIONS (2)
  - COMA HEPATIC [None]
  - THROMBOCYTOPENIA [None]
